FAERS Safety Report 13822304 (Version 1)
Quarter: 2017Q3

REPORT INFORMATION
  Report Type: Spontaneous
  Country: US (occurrence: US)
  Receive Date: 20170801
  Receipt Date: 20170801
  Transmission Date: 20171127
  Serious: No
  Sender: FDA-Public Use
  Company Number: US-IMPAX LABORATORIES, INC-2017-IPXL-00566

PATIENT
  Sex: Female

DRUGS (1)
  1. ALBENZA [Suspect]
     Active Substance: ALBENDAZOLE
     Indication: ENTEROBIASIS
     Dosage: 200 MG TWO TABLETS AT ONE TIME AND TWO TABLETS 14 DAYS LATER
     Route: 048
     Dates: start: 20170212

REACTIONS (1)
  - Drug ineffective for unapproved indication [Unknown]
